FAERS Safety Report 12733841 (Version 1)
Quarter: 2016Q3

REPORT INFORMATION
  Report Type: Report from Study
  Country: US (occurrence: US)
  Receive Date: 20160912
  Receipt Date: 20160912
  Transmission Date: 20161109
  Serious: Yes (Death, Other)
  Sender: FDA-Public Use
  Company Number: US-ROCHE-1827840

PATIENT
  Age: 19 Year
  Sex: Male
  Weight: 61.4 kg

DRUGS (2)
  1. BEVACIZUMAB [Suspect]
     Active Substance: BEVACIZUMAB
     Dosage: LAST DOSE PRIOR TO DIARRHEA: 05/AUG/2013 (COURSE 3)
     Route: 042
     Dates: start: 20130805, end: 20140131
  2. BEVACIZUMAB [Suspect]
     Active Substance: BEVACIZUMAB
     Indication: MEDULLOBLASTOMA
     Dosage: LAST DOSE PRIOR TO HYPOPHOSPHATEMIA: 16/APR/2013 (COURSE 1)
     Route: 042
     Dates: start: 20130416

REACTIONS (3)
  - Diarrhoea [Unknown]
  - Death [Fatal]
  - Hypophosphataemia [Unknown]

NARRATIVE: CASE EVENT DATE: 20141216
